FAERS Safety Report 21603856 (Version 7)
Quarter: 2023Q4

REPORT INFORMATION
  Report Type: Spontaneous
  Country: US (occurrence: US)
  Receive Date: 20221116
  Receipt Date: 20231103
  Transmission Date: 20240109
  Serious: No
  Sender: FDA-Public Use
  Company Number: US-PHARMAESSENTIA CORPORATION-US-2022-PEC-000902

PATIENT
  Sex: Female

DRUGS (11)
  1. BESREMI [Suspect]
     Active Substance: ROPEGINTERFERON ALFA-2B-NJFT
     Indication: Polycythaemia vera
     Dosage: 100 MCG, Q2W
     Route: 058
     Dates: start: 20221027
  2. BESREMI [Suspect]
     Active Substance: ROPEGINTERFERON ALFA-2B-NJFT
     Indication: Myeloproliferative neoplasm
     Dosage: 300 MCG
     Route: 058
     Dates: start: 20230112
  3. BESREMI [Suspect]
     Active Substance: ROPEGINTERFERON ALFA-2B-NJFT
     Dosage: 300 MCG
     Route: 058
     Dates: start: 20230126
  4. BESREMI [Suspect]
     Active Substance: ROPEGINTERFERON ALFA-2B-NJFT
     Dosage: 300 MCG
     Route: 065
     Dates: start: 20230209
  5. BESREMI [Suspect]
     Active Substance: ROPEGINTERFERON ALFA-2B-NJFT
     Dosage: UNK
     Route: 065
  6. BESREMI [Suspect]
     Active Substance: ROPEGINTERFERON ALFA-2B-NJFT
     Dosage: 50 MCG, Q2W
     Route: 065
  7. BESREMI [Suspect]
     Active Substance: ROPEGINTERFERON ALFA-2B-NJFT
     Dosage: UNK
     Route: 065
  8. ASPIRIN [Concomitant]
     Active Substance: ASPIRIN
     Indication: Polycythaemia vera
     Dosage: 2 DOSAGE FORM, QD
     Route: 065
  9. ASPIRIN [Concomitant]
     Active Substance: ASPIRIN
     Dosage: 1 DOSAGE FORM, QD
     Route: 065
  10. VITAMINS NOS [Concomitant]
     Active Substance: VITAMINS
     Indication: Product used for unknown indication
     Dosage: UNK, QD
     Route: 065
  11. LORATADINE [Concomitant]
     Active Substance: LORATADINE
     Indication: Cardiac flutter
     Dosage: UNK UNK, QD
     Route: 065

REACTIONS (18)
  - Arthropod bite [Not Recovered/Not Resolved]
  - Tenderness [Unknown]
  - Blood potassium increased [Not Recovered/Not Resolved]
  - Sluggishness [Recovered/Resolved]
  - Haematocrit increased [Recovering/Resolving]
  - Back injury [Unknown]
  - Product dose omission issue [Unknown]
  - Haemangioma of skin [Unknown]
  - Increased appetite [Unknown]
  - Anxiety [Recovered/Resolved]
  - Throat irritation [Unknown]
  - Injection site erythema [Not Recovered/Not Resolved]
  - Dry skin [Not Recovered/Not Resolved]
  - Rash erythematous [Recovered/Resolved]
  - Pruritus [Not Recovered/Not Resolved]
  - Dry eye [Not Recovered/Not Resolved]
  - Platelet count decreased [Unknown]
  - Alopecia [Unknown]

NARRATIVE: CASE EVENT DATE: 20221027
